FAERS Safety Report 7689203-0 (Version None)
Quarter: 2011Q3

REPORT INFORMATION
  Report Type: 
  Country: None (occurrence: None)
  Receive Date: 20110811
  Receipt Date: 20110804
  Transmission Date: 20111222
  Serious: Yes (Hospitalization)
  Sender: FDA-Public Use
  Company Number: 2011MA011201

PATIENT
  Age: 50 Year
  Sex: Male
  Weight: 44.8154 kg

DRUGS (4)
  1. RITUXUMAB [Concomitant]
  2. OFATUUMAB [Suspect]
     Indication: CHRONIC LYMPHOCYTIC LEUKAEMIA
     Dosage: 100 MG; QM; IV
     Route: 042
     Dates: start: 20110309, end: 20110609
  3. CYCLOPHOSPHAMIDE [Suspect]
     Indication: CHRONIC LYMPHOCYTIC LEUKAEMIA
     Dosage: 550 MG;QM; IV
     Route: 042
     Dates: start: 20110309, end: 20110603
  4. FLUDARABINE PHOSPHATE [Suspect]
     Indication: CHRONIC LYMPHOCYTIC LEUKAEMIA
     Dosage: 55 MG; QM; IV
     Route: 042
     Dates: start: 20110309, end: 20110603

REACTIONS (2)
  - SYNCOPE [None]
  - BRADYCARDIA [None]
